FAERS Safety Report 9969985 (Version 1)
Quarter: 2014Q1

REPORT INFORMATION
  Report Type: Spontaneous
  Country: FR (occurrence: None)
  Receive Date: 20140304
  Receipt Date: 20140304
  Transmission Date: 20141002
  Serious: Yes (Life-Threatening, Hospitalization, Other)
  Sender: FDA-Public Use
  Company Number: ADR-2014-00313

PATIENT
  Age: 28 Year
  Sex: Female

DRUGS (2)
  1. BACLOFEN [Suspect]
     Indication: ALCOHOLISM
     Dosage: DAY
  2. ALCOHOL (ETHANOL) [Suspect]

REACTIONS (1)
  - Somnolence [None]
